FAERS Safety Report 7444964-0 (Version None)
Quarter: 2011Q2

REPORT INFORMATION
  Report Type: 
  Country: None (occurrence: None)
  Receive Date: 20110429
  Receipt Date: 20110425
  Transmission Date: 20111010
  Serious: Yes (Death, Hospitalization)
  Sender: FDA-Public Use
  Company Number: PHHY2009US66830

PATIENT
  Sex: Female

DRUGS (22)
  1. GRANULOCYTE STIMULATING FACTORS [Concomitant]
     Dosage: 315 UG, Q12H
     Route: 042
  2. VITAMIN K TAB [Concomitant]
  3. VITAMIN B-12 [Concomitant]
  4. THIOTEPA [Concomitant]
  5. FLUDARABINE PHOSPHATE [Concomitant]
  6. FOLIC ACID [Concomitant]
  7. FENTANYL [Concomitant]
  8. ACYCLOVIR [Concomitant]
     Dosage: 410 MG, Q8H
     Route: 042
  9. AMBISOME [Concomitant]
     Dosage: 325 MG, QD
  10. FLAGYL [Concomitant]
     Dosage: 500 MG, Q6H
     Route: 042
  11. EXJADE [Suspect]
     Indication: APLASTIC ANAEMIA
     Dosage: 125 MG, UNK
     Route: 048
  12. STEROIDS NOS [Concomitant]
     Dates: start: 20080501
  13. RANITIDINE [Concomitant]
     Indication: HYPERSENSITIVITY
  14. SODIUM BICARBONATE [Concomitant]
     Dosage: 10 ML, QID
  15. EQUIN [Concomitant]
     Dosage: 160 MG/KG, UNK
  16. CYCLOSPORINE [Concomitant]
     Dosage: 100 MG, Q12H
     Route: 042
     Dates: start: 20080701
  17. HEPARIN [Concomitant]
     Dosage: UNK
  18. NYSTATIN [Concomitant]
     Dosage: 5 ML, TID
     Route: 048
  19. EXJADE [Suspect]
     Dosage: 500 MG, UNK
     Route: 048
  20. IMMUNOGLOBULINS [Concomitant]
     Route: 042
  21. MICAFUNGIN [Concomitant]
     Dosage: 150 MG, QD
     Route: 042
  22. CEFEPIME [Concomitant]
     Dosage: 2 G, Q8H
     Route: 042

REACTIONS (14)
  - PNEUMONITIS [None]
  - DIFFUSE ALVEOLAR DAMAGE [None]
  - BACTERAEMIA [None]
  - HYPERTENSION [None]
  - ACUTE RESPIRATORY FAILURE [None]
  - LUNG INFILTRATION [None]
  - SEPSIS [None]
  - MUCOSAL INFLAMMATION [None]
  - RESPIRATORY FAILURE [None]
  - TACHYPNOEA [None]
  - ARTERIAL THROMBOSIS LIMB [None]
  - HYPERBILIRUBINAEMIA [None]
  - HYPOXIA [None]
  - THROMBOCYTOPENIA [None]
